FAERS Safety Report 15331559 (Version 1)
Quarter: 2018Q3

REPORT INFORMATION
  Report Type: Report from Study
  Country: JP (occurrence: JP)
  Receive Date: 20180829
  Receipt Date: 20180829
  Transmission Date: 20181010
  Serious: Yes (Other)
  Sender: FDA-Public Use
  Company Number: JP-UCBSA-2018031813

PATIENT
  Age: 74 Year
  Sex: Male

DRUGS (5)
  1. LACOSAMIDE. [Suspect]
     Active Substance: LACOSAMIDE
     Indication: SIMPLE PARTIAL SEIZURES
     Dosage: 50 MG, 2X/DAY (BID)
     Route: 048
     Dates: start: 20171204
  2. ALEVIATIN [Concomitant]
     Active Substance: PHENYTOIN SODIUM
     Indication: SIMPLE PARTIAL SEIZURES
     Route: 048
  3. HYDANTOL [Concomitant]
     Active Substance: PHENYTOIN SODIUM
     Indication: SIMPLE PARTIAL SEIZURES
     Route: 048
  4. TEGRETOL [Concomitant]
     Active Substance: CARBAMAZEPINE
     Indication: SIMPLE PARTIAL SEIZURES
     Dosage: 100 MG, UNK
     Route: 048
     Dates: end: 20171103
  5. E KEPPRA [Concomitant]
     Active Substance: LEVETIRACETAM
     Indication: SIMPLE PARTIAL SEIZURES
     Route: 048
     Dates: end: 20180214

REACTIONS (2)
  - Hepatic function abnormal [Not Recovered/Not Resolved]
  - Blood creatine phosphokinase increased [Recovered/Resolved]

NARRATIVE: CASE EVENT DATE: 20180329
